FAERS Safety Report 24309453 (Version 1)
Quarter: 2024Q3

REPORT INFORMATION
  Report Type: Report from Study
  Country: CA (occurrence: CA)
  Receive Date: 20240911
  Receipt Date: 20240911
  Transmission Date: 20241017
  Serious: Yes (Hospitalization, Other)
  Sender: ABBVIE
  Company Number: CA-ABBVIE-5913710

PATIENT
  Sex: Female

DRUGS (1)
  1. BOTOX [Suspect]
     Active Substance: ONABOTULINUMTOXINA
     Indication: Migraine
     Dosage: TIME INTERVAL: AS NECESSARY: EVERY 12 WEEKS
     Route: 030

REACTIONS (6)
  - Hospitalisation [Unknown]
  - Feeling abnormal [Unknown]
  - Stress [Unknown]
  - Anxiety [Unknown]
  - Fear [Unknown]
  - Loss of personal independence in daily activities [Unknown]
